FAERS Safety Report 12926161 (Version 2)
Quarter: 2016Q4

REPORT INFORMATION
  Report Type: Spontaneous
  Country: US (occurrence: US)
  Receive Date: 20161108
  Receipt Date: 20161115
  Transmission Date: 20170207
  Serious: Yes (Hospitalization)
  Sender: FDA-Public Use
  Company Number: US-SA-2016SA173820

PATIENT
  Age: 71 Year
  Sex: Male

DRUGS (20)
  1. ALLOPURINOL. [Concomitant]
     Active Substance: ALLOPURINOL
  2. ASPIRIN. [Concomitant]
     Active Substance: ASPIRIN
  3. METOPROLOL. [Concomitant]
     Active Substance: METOPROLOL
  4. NOVOLOG [Concomitant]
     Active Substance: INSULIN ASPART
  5. ISOSORBIDE. [Concomitant]
     Active Substance: ISOSORBIDE
  6. ELIQUIS [Concomitant]
     Active Substance: APIXABAN
  7. PRALUENT [Suspect]
     Active Substance: ALIROCUMAB
     Indication: TYPE V HYPERLIPIDAEMIA
     Route: 058
     Dates: start: 20160804
  8. ALIROCUMAB PREFILLED PEN [Concomitant]
     Active Substance: ALIROCUMAB
     Indication: TYPE V HYPERLIPIDAEMIA
     Dates: start: 20160804
  9. SPIRONOLACTONE. [Concomitant]
     Active Substance: SPIRONOLACTONE
  10. PROSTAT [Concomitant]
     Active Substance: SAW PALMETTO
  11. VITAMIN E [Concomitant]
     Active Substance: .ALPHA.-TOCOPHEROL
  12. VITAMIN D [Concomitant]
     Active Substance: CHOLECALCIFEROL
  13. BROMOCRIPTINE [Concomitant]
     Active Substance: BROMOCRIPTINE
  14. DULERA [Concomitant]
     Active Substance: FORMOTEROL FUMARATE DIHYDRATE\MOMETASONE FUROATE
  15. FISH OIL [Concomitant]
     Active Substance: FISH OIL
  16. FUROSEMIDE. [Concomitant]
     Active Substance: FUROSEMIDE
  17. LANTUS [Concomitant]
     Active Substance: INSULIN GLARGINE
  18. GABAPENTIN. [Concomitant]
     Active Substance: GABAPENTIN
  19. POTASSIUM CHLORIDE. [Concomitant]
     Active Substance: POTASSIUM CHLORIDE
  20. PANTOPRAZOLE [Concomitant]
     Active Substance: PANTOPRAZOLE SODIUM

REACTIONS (4)
  - Hospitalisation [Unknown]
  - Malaise [Unknown]
  - Weight increased [Unknown]
  - Dyspnoea [Unknown]

NARRATIVE: CASE EVENT DATE: 2016
